FAERS Safety Report 9744471 (Version 1)
Quarter: 2013Q4

REPORT INFORMATION
  Report Type: Spontaneous
  Country: US (occurrence: US)
  Receive Date: 20131210
  Receipt Date: 20131210
  Transmission Date: 20140711
  Serious: Yes (Death, Other)
  Sender: FDA-Public Use
  Company Number: US-ACTAVIS-2013-22270

PATIENT
  Age: 64 Year
  Sex: Female

DRUGS (3)
  1. DOXORUBICIN (UNKNOWN) [Suspect]
     Indication: OVARIAN CANCER
     Dosage: UNK
     Route: 065
  2. CARBOPLATIN (WATSON LABORATORIES) [Suspect]
     Indication: OVARIAN CANCER
     Dosage: UNK
     Route: 065
  3. PACLITAXEL (ATLLC) (PACLITAXEL) UNK, UNKUNK [Suspect]
     Indication: OVARIAN CANCER
     Dosage: UNK
     Route: 065

REACTIONS (3)
  - Renal failure chronic [Fatal]
  - Cardiac failure congestive [Fatal]
  - Hypertension [Unknown]
